FAERS Safety Report 8776236 (Version 1)
Quarter: 2012Q4

REPORT INFORMATION
  Report Type: 
  Country: US (occurrence: US)
  Receive Date: 20120910
  Receipt Date: 20120910
  Transmission Date: 20130627
  Serious: Yes (Death, Other)
  Sender: FDA-Public Use
  Company Number: US-JNJFOC-20120902436

PATIENT
  Age: 22 Year
  Sex: Female

DRUGS (3)
  1. DOXORUBICIN [Suspect]
     Indication: OVARIAN CANCER
     Route: 042
  2. BEVACIZUMAB [Suspect]
     Indication: OVARIAN CANCER
     Route: 065
  3. PACLITAXEL [Suspect]
     Indication: OVARIAN CANCER
     Route: 065

REACTIONS (2)
  - Ovarian cancer [Fatal]
  - Small intestinal obstruction [Unknown]
